FAERS Safety Report 21023986 (Version 6)
Quarter: 2022Q4

REPORT INFORMATION
  Report Type: Report from Study
  Country: US (occurrence: US)
  Receive Date: 20220629
  Receipt Date: 20221006
  Transmission Date: 20230112
  Serious: Yes (Other)
  Sender: FDA-Public Use
  Company Number: US-NOVARTISPH-NVSC2022US147467

PATIENT
  Age: 54 Year
  Sex: Male
  Weight: 76.7 kg

DRUGS (6)
  1. ENTRESTO [Suspect]
     Active Substance: SACUBITRIL\VALSARTAN
     Indication: Cardiac failure chronic
     Dosage: 1 DOSAGE FORM, BID (49/51MG)
     Route: 048
  2. ENTRESTO [Suspect]
     Active Substance: SACUBITRIL\VALSARTAN
     Dosage: 1 DOSAGE FORM (24/26 MG), BID
     Route: 048
     Dates: start: 202205
  3. ENTRESTO [Suspect]
     Active Substance: SACUBITRIL\VALSARTAN
     Dosage: 1 DOSAGE FORM (97/103 MG) (3 YEARS AGO)
     Route: 048
  4. ENTRESTO [Suspect]
     Active Substance: SACUBITRIL\VALSARTAN
     Dosage: 2.5 DOSAGE FORM (1.5 DF IN MORNING, 1 DF IN EVENING)
     Route: 065
  5. JANUVIA [Concomitant]
     Active Substance: SITAGLIPTIN PHOSPHATE
     Indication: Diabetes mellitus
     Dosage: UNK
     Route: 065
  6. TRULICITY [Concomitant]
     Active Substance: DULAGLUTIDE
     Indication: Diabetes mellitus
     Dosage: UNK
     Route: 065

REACTIONS (11)
  - Angina pectoris [Unknown]
  - Chest discomfort [Not Recovered/Not Resolved]
  - Gait inability [Unknown]
  - Back injury [Unknown]
  - Irritable bowel syndrome [Not Recovered/Not Resolved]
  - Hyperaesthesia teeth [Recovered/Resolved]
  - Toothache [Recovered/Resolved]
  - Cough [Unknown]
  - Dizziness [Recovering/Resolving]
  - Fatigue [Recovering/Resolving]
  - Wrong technique in product usage process [Unknown]

NARRATIVE: CASE EVENT DATE: 20220107
